FAERS Safety Report 15331097 (Version 3)
Quarter: 2020Q4

REPORT INFORMATION
  Report Type: Spontaneous
  Country: US (occurrence: US)
  Receive Date: 20180829
  Receipt Date: 20201120
  Transmission Date: 20210113
  Serious: Yes (Death, Other)
  Sender: FDA-Public Use
  Company Number: US-BIOMARINAP-US-2018-119528

PATIENT
  Age: 16 Year
  Sex: Male

DRUGS (2)
  1. ALDURAZYME [Suspect]
     Active Substance: LARONIDASE
     Indication: MUCOPOLYSACCHARIDOSIS I
     Dosage: 17.4 MILLIGRAM/KILOGRAM
     Route: 041
     Dates: start: 20071015
  2. ALDURAZYME [Suspect]
     Active Substance: LARONIDASE
     Dosage: 17.4 MILLIGRAM/KILOGRAM, QW
     Route: 042
     Dates: start: 20190726

REACTIONS (3)
  - Death [Fatal]
  - Musculoskeletal disorder [Unknown]
  - Pneumonia [Unknown]

NARRATIVE: CASE EVENT DATE: 20201112
